FAERS Safety Report 8976027 (Version 2)
Quarter: 2013Q2

REPORT INFORMATION
  Report Type: Spontaneous
  Country: RU (occurrence: RU)
  Receive Date: 20121219
  Receipt Date: 20130502
  Transmission Date: 20140414
  Serious: Yes (Other)
  Sender: FDA-Public Use
  Company Number: PHHY2012RU116180

PATIENT
  Age: 38 Year
  Sex: Male
  Weight: 119 kg

DRUGS (5)
  1. RASILEZ [Suspect]
     Indication: HYPERTENSION
     Dosage: 150 MG, QD
     Route: 048
  2. LISINOPRIL [Concomitant]
     Indication: HYPERTENSION
     Dosage: 1 DF (10 MG), UNK
     Route: 048
  3. HYPOTHIAZID [Concomitant]
     Indication: HYPERTENSION
     Dosage: 1 DF (12.5 MG), UNK
     Route: 048
  4. LESCOL [Concomitant]
     Indication: HYPERTENSION
     Dosage: UNK
     Route: 048
  5. THROMBO ASS [Concomitant]
     Indication: HYPERTENSION
     Dosage: UNK

REACTIONS (1)
  - Renin increased [Not Recovered/Not Resolved]
